FAERS Safety Report 12454096 (Version 4)
Quarter: 2020Q3

REPORT INFORMATION
  Report Type: Report from Study
  Country: JP (occurrence: JP)
  Receive Date: 20160610
  Receipt Date: 20160706
  Transmission Date: 20201105
  Serious: Yes (Death, Hospitalization)
  Sender: FDA-Public Use
  Company Number: JP-ROCHE-1596276

PATIENT
  Age: 43 Year
  Sex: Female
  Weight: 61 kg

DRUGS (17)
  1. ALECTINIB. [Suspect]
     Active Substance: ALECTINIB
     Indication: LUNG ADENOCARCINOMA
     Route: 048
     Dates: start: 20150618, end: 20150622
  2. LANSOPRAZOLE. [Concomitant]
     Active Substance: LANSOPRAZOLE
     Indication: PROPHYLAXIS
     Route: 048
     Dates: end: 20150622
  3. GLAKAY [Concomitant]
     Active Substance: MENATETRENONE
     Route: 048
     Dates: start: 20150622, end: 20150622
  4. LOXOPROFEN NA [Concomitant]
     Active Substance: LOXOPROFEN SODIUM
     Indication: LUNG ADENOCARCINOMA
     Route: 048
     Dates: end: 20150622
  5. KETOPROFEN. [Concomitant]
     Active Substance: KETOPROFEN
     Indication: LUNG ADENOCARCINOMA
     Dosage: AT HOPE
     Route: 061
     Dates: end: 20150622
  6. ALECTINIB. [Suspect]
     Active Substance: ALECTINIB
     Indication: LUNG ADENOCARCINOMA
     Route: 048
     Dates: start: 20150604, end: 20150611
  7. WARFARIN POTASSIUM [Concomitant]
     Active Substance: WARFARIN POTASSIUM
     Route: 048
     Dates: end: 20150617
  8. WYPAX [Concomitant]
     Active Substance: LORAZEPAM
     Indication: PROPHYLAXIS
     Route: 048
     Dates: end: 20150622
  9. OXINORM (JAPAN) [Concomitant]
     Active Substance: OXYCODONE HYDROCHLORIDE
     Indication: LUNG ADENOCARCINOMA
     Dosage: SINGLE USE (AT THE PAIN).  THE DOSAGE 2.5?10MG A DAY
     Route: 048
     Dates: end: 20150622
  10. ACETAMINOPHEN. [Concomitant]
     Active Substance: ACETAMINOPHEN
     Indication: LUNG ADENOCARCINOMA
     Dosage: AT THE SINGLE USE PAIN
     Route: 048
     Dates: end: 20150622
  11. RESTAMIN [Concomitant]
     Active Substance: DIPHENHYDRAMINE
     Dosage: DOSAGE IS UNCERTAIN. ?SEVERAL?TIME
     Route: 003
     Dates: end: 20150622
  12. BROTIZOLAM [Concomitant]
     Active Substance: BROTIZOLAM
     Route: 048
     Dates: end: 20150626
  13. SENNOSIDE [Concomitant]
     Active Substance: SENNOSIDES
     Dosage: AT THE SINGLE USE OBSTIPATION
     Route: 048
     Dates: end: 20150622
  14. OLOPATADINE HYDROCHLORIDE. [Concomitant]
     Active Substance: OLOPATADINE HYDROCHLORIDE
     Route: 048
     Dates: end: 20150622
  15. OXYCONTIN [Concomitant]
     Active Substance: OXYCODONE HYDROCHLORIDE
     Indication: LUNG ADENOCARCINOMA
     Dosage: DOSAGE 10MG?60MG DURING A DAY
     Route: 048
     Dates: start: 20150613, end: 20150622
  16. SERENACE [Concomitant]
     Active Substance: HALOPERIDOL
     Indication: LUNG ADENOCARCINOMA
     Dosage: AT THE SINGLE USE UNREST
     Route: 048
     Dates: start: 20150621, end: 20150625
  17. AMBROXOL HYDROCHLORIDE [Concomitant]
     Active Substance: AMBROXOL HYDROCHLORIDE
     Indication: LUNG ADENOCARCINOMA
     Route: 048
     Dates: start: 2015, end: 20150622

REACTIONS (2)
  - White blood cell count decreased [Recovered/Resolved]
  - Neutrophil count decreased [Recovered/Resolved]

NARRATIVE: CASE EVENT DATE: 20150608
